FAERS Safety Report 8583463-X (Version None)
Quarter: 2012Q3

REPORT INFORMATION
  Report Type: 
  Country: None (occurrence: None)
  Receive Date: 20120809
  Receipt Date: 20120804
  Transmission Date: 20120928
  Serious: Yes (Other)
  Sender: FDA-Public Use
  Company Number: US-BAYER-2012-079808

PATIENT
  Age: 18 Year
  Sex: Female

DRUGS (2)
  1. MIRENA [Suspect]
     Indication: MENORRHAGIA
     Dosage: DAILY DOSE 20 ?G
     Route: 015
     Dates: start: 20120728
  2. MIRENA [Suspect]
     Indication: CONTRACEPTION

REACTIONS (3)
  - DIARRHOEA [None]
  - UTERINE HAEMORRHAGE [None]
  - ABDOMINAL PAIN [None]
